FAERS Safety Report 23287327 (Version 1)
Quarter: 2023Q4

REPORT INFORMATION
  Report Type: Spontaneous
  Country: NO (occurrence: NO)
  Receive Date: 20231212
  Receipt Date: 20231212
  Transmission Date: 20240109
  Serious: Yes (Other)
  Sender: FDA-Public Use
  Company Number: NO-SA-2023SA378843

PATIENT
  Age: 68 Year
  Sex: Male

DRUGS (3)
  1. ALEMTUZUMAB [Suspect]
     Active Substance: ALEMTUZUMAB
     Indication: T-cell prolymphocytic leukaemia
     Dosage: GIVEN IN AN ESCALATING DOSAGE
  2. PENTOSTATIN [Suspect]
     Active Substance: PENTOSTATIN
     Indication: T-cell prolymphocytic leukaemia
     Dosage: 4 MG/M2, QW
     Route: 042
  3. PENTOSTATIN [Suspect]
     Active Substance: PENTOSTATIN
     Dosage: 4 MG/M2, QOW
     Route: 042

REACTIONS (3)
  - Pneumonia [Recovered/Resolved]
  - Febrile neutropenia [Recovered/Resolved]
  - Respiratory symptom [Recovered/Resolved]
